FAERS Safety Report 7434041-7 (Version None)
Quarter: 2011Q2

REPORT INFORMATION
  Report Type: 
  Country: None (occurrence: None)
  Receive Date: 20110421
  Receipt Date: 20110421
  Transmission Date: 20111010
  Serious: No
  Sender: FDA-Public Use
  Company Number: None

PATIENT
  Sex: Female
  Weight: 73.7 kg

DRUGS (2)
  1. PACLITAXEL [Suspect]
     Dosage: 330 MG
     Dates: end: 20110405
  2. CARBOPLATIN [Suspect]
     Dosage: 600 MG
     Dates: end: 20110405

REACTIONS (1)
  - SYNCOPE [None]
